FAERS Safety Report 7955507 (Version 4)
Quarter: 2013Q3

REPORT INFORMATION
  Report Type: Spontaneous
  Country: US (occurrence: PL)
  Receive Date: 20110523
  Receipt Date: 20130809
  Transmission Date: 20140515
  Serious: Yes (Hospitalization)
  Sender: FDA-Public Use
  Company Number: US-SANOFI-AVENTIS-2011SA030173

PATIENT
  Age: 74 Year
  Sex: Male

DRUGS (13)
  1. PLAVIX [Suspect]
     Indication: PRODUCT USED FOR UNKNOWN INDICATION
     Route: 048
     Dates: start: 20101115, end: 20101115
  2. ASPIRIN [Suspect]
     Indication: PRODUCT USED FOR UNKNOWN INDICATION
     Route: 065
     Dates: start: 20100803
  3. CLOPIDOGREL BISULFATE [Suspect]
     Indication: PRODUCT USED FOR UNKNOWN INDICATION
     Route: 048
     Dates: start: 20101116
  4. MIXTARD HM [Concomitant]
  5. METFORMAX [Concomitant]
  6. HMG COA REDUCTASE INHIBITORS [Concomitant]
  7. BETA BLOCKING AGENTS [Concomitant]
  8. ANGIOTENSIN II ANTAGONISTS [Concomitant]
  9. DIURETICS [Concomitant]
  10. ALPHA-ADRENOCEPTOR BLOCKING AGENTS [Concomitant]
  11. HEPARIN [Concomitant]
     Dates: start: 20101115
  12. ALL OTHER THERAPEUTIC PRODUCTS [Concomitant]
  13. PLACEBO [Concomitant]
     Indication: TYPE 2 DIABETES MELLITUS
     Dates: start: 20100803

REACTIONS (5)
  - Gastritis [Recovered/Resolved]
  - Abdominal pain [Recovered/Resolved]
  - Dyspepsia [Recovered/Resolved]
  - Nausea [Recovered/Resolved]
  - Prescribed overdose [Unknown]
